FAERS Safety Report 10723562 (Version 4)
Quarter: 2015Q2

REPORT INFORMATION
  Report Type: Spontaneous
  Country: JP (occurrence: None)
  Receive Date: 20150115
  Receipt Date: 20150424
  Transmission Date: 20150821
  Serious: Yes (Other)
  Sender: FDA-Public Use
  Company Number: JP2014JPN032335

PATIENT
  Age: 66 Year
  Sex: Male
  Weight: 50 kg

DRUGS (3)
  1. ZEFIX [Suspect]
     Active Substance: LAMIVUDINE
     Indication: CHRONIC HEPATITIS B
     Route: 048
     Dates: start: 2001
  2. HEPSERA [Suspect]
     Active Substance: ADEFOVIR DIPIVOXIL
     Indication: CHRONIC HEPATITIS B
     Route: 048
     Dates: start: 200509
  3. GLIMEPIRIDE (GLIMEPIRIDE) [Concomitant]
     Active Substance: GLIMEPIRIDE

REACTIONS (12)
  - Osteomalacia [None]
  - Back pain [None]
  - Aminoaciduria [None]
  - Bone density decreased [None]
  - Blood uric acid decreased [None]
  - Metabolic acidosis [None]
  - Blood alkaline phosphatase increased [None]
  - Fanconi syndrome [None]
  - Hypophosphataemia [None]
  - Muscular weakness [None]
  - Gait disturbance [None]
  - Lumbar vertebral fracture [None]

NARRATIVE: CASE EVENT DATE: 201305
